FAERS Safety Report 9836112 (Version 1)
Quarter: 2014Q1

REPORT INFORMATION
  Report Type: Spontaneous
  Country: PH (occurrence: PH)
  Receive Date: 20140123
  Receipt Date: 20140123
  Transmission Date: 20141002
  Serious: Yes (Death, Hospitalization, Other)
  Sender: FDA-Public Use
  Company Number: PH-009507513-1401PHL008946

PATIENT
  Age: 80 Year
  Sex: Female

DRUGS (1)
  1. COZAAR [Suspect]
     Dosage: ONE TABLET, ONCE A DAY
     Route: 048
     Dates: start: 20121029

REACTIONS (3)
  - Pulmonary oedema [Fatal]
  - Increased upper airway secretion [Unknown]
  - Cough [Unknown]
